FAERS Safety Report 20468595 (Version 1)
Quarter: 2022Q1

REPORT INFORMATION
  Report Type: Spontaneous
  Country: US (occurrence: None)
  Receive Date: 20220211
  Receipt Date: 20220211
  Transmission Date: 20220423
  Serious: No
  Sender: FDA-Public Use
  Company Number: None

PATIENT
  Age: 10 Month
  Sex: Male
  Weight: 8.55 kg

DRUGS (1)
  1. PREDNISOLONE [Suspect]
     Active Substance: PREDNISOLONE
     Indication: Croup infectious
     Route: 048
     Dates: start: 20220210, end: 20220211

REACTIONS (1)
  - Vomiting [None]

NARRATIVE: CASE EVENT DATE: 20220210
